FAERS Safety Report 4964062-5 (Version None)
Quarter: 2006Q1

REPORT INFORMATION
  Report Type: 
  Country: None (occurrence: None)
  Receive Date: 20060330
  Receipt Date: 20060310
  Transmission Date: 20060701
  Serious: Yes (Hospitalization)
  Sender: FDA-Public Use
  Company Number: US200603002815

PATIENT
  Sex: Male

DRUGS (1)
  1. HUMULIN N [Suspect]
     Indication: BLOOD GLUCOSE ABNORMAL
     Dosage: 15 U EACH MORNING

REACTIONS (6)
  - BLOOD GLUCOSE INCREASED [None]
  - COUGH [None]
  - MYOCARDIAL INFARCTION [None]
  - NASOPHARYNGITIS [None]
  - PAIN [None]
  - PRODUCTIVE COUGH [None]
